FAERS Safety Report 17517968 (Version 1)
Quarter: 2020Q1

REPORT INFORMATION
  Report Type: Spontaneous
  Country: US (occurrence: US)
  Receive Date: 20200309
  Receipt Date: 20200309
  Transmission Date: 20200409
  Serious: Yes (Hospitalization)
  Sender: FDA-Public Use
  Company Number: US-VERTEX PHARMACEUTICALS-2020-004518

PATIENT
  Sex: Female

DRUGS (1)
  1. ORKAMBI [Suspect]
     Active Substance: IVACAFTOR\LUMACAFTOR
     Indication: CYSTIC FIBROSIS
     Dosage: 100/125MG, BID
     Route: 048
     Dates: start: 201901, end: 202002

REACTIONS (4)
  - Blood sodium decreased [Recovered/Resolved]
  - Pancreatic failure [Recovered/Resolved]
  - Blood glucose increased [Recovered/Resolved]
  - Pulmonary oedema [Recovered/Resolved]
